FAERS Safety Report 7085998-8 (Version None)
Quarter: 2010Q4

REPORT INFORMATION
  Report Type: 
  Country: None (occurrence: None)
  Receive Date: 20101027
  Receipt Date: 20101011
  Transmission Date: 20110411
  Serious: Yes (Hospitalization, Other)
  Sender: FDA-Public Use
  Company Number: ACO_02711_2010

PATIENT
  Sex: Female

DRUGS (13)
  1. AMPYRA [Suspect]
     Indication: PRODUCT USED FOR UNKNOWN INDICATION
     Dosage: (10 MG BID), (10 MG BID)
     Dates: start: 20100716, end: 20100722
  2. AMPYRA [Suspect]
     Indication: PRODUCT USED FOR UNKNOWN INDICATION
     Dosage: (10 MG BID), (10 MG BID)
     Dates: start: 20100901
  3. REMERON [Concomitant]
  4. ATIVAN [Concomitant]
  5. REQUIP [Concomitant]
  6. AMBIEN [Concomitant]
  7. SEROQUEL [Concomitant]
  8. LEXAPRO [Concomitant]
  9. AROMASIN [Concomitant]
  10. COPAXONE /03175301/ [Concomitant]
  11. SANCTURA [Concomitant]
  12. FLORINEF [Concomitant]
  13. MIRAPEX [Concomitant]

REACTIONS (9)
  - CONVULSION [None]
  - DIZZINESS [None]
  - DROOLING [None]
  - FAECAL INCONTINENCE [None]
  - HYPERVENTILATION [None]
  - LOSS OF CONSCIOUSNESS [None]
  - SYNCOPE [None]
  - TREMOR [None]
  - VOMITING [None]
